FAERS Safety Report 6694330-0 (Version None)
Quarter: 2010Q2

REPORT INFORMATION
  Report Type: 
  Country: None (occurrence: None)
  Receive Date: 20100423
  Receipt Date: 20100413
  Transmission Date: 20101027
  Serious: Yes (Death, Hospitalization)
  Sender: FDA-Public Use
  Company Number: IN-PFIZER INC-2008070182

PATIENT
  Age: 50 Year
  Sex: Male
  Weight: 60 kg

DRUGS (10)
  1. FLUOROURACIL [Suspect]
     Indication: COLORECTAL CANCER METASTATIC
     Dosage: ONCE 24 HRS INFUSION, 2 DAYS
     Route: 042
     Dates: start: 20080807, end: 20080807
  2. *PLACEBO [Suspect]
     Indication: COLORECTAL CANCER METASTATIC
     Dosage: 0 MG, 1X/DAY
     Route: 048
     Dates: start: 20080807
  3. IRINOTECAN HCL [Suspect]
     Indication: COLORECTAL CANCER METASTATIC
     Dosage: ONCE
     Route: 042
     Dates: start: 20080807, end: 20080807
  4. CALCIUM FOLINATE [Suspect]
     Indication: COLORECTAL CANCER METASTATIC
     Dosage: ONCE
     Route: 042
     Dates: start: 20080807, end: 20080807
  5. MOPADAY [Concomitant]
     Route: 048
     Dates: start: 20080805, end: 20080815
  6. TRYPTOMER [Concomitant]
     Route: 048
     Dates: start: 20080702, end: 20080814
  7. MEBEVERINE [Concomitant]
     Route: 048
     Dates: start: 20080702, end: 20080807
  8. OMEPRAZOLE [Concomitant]
     Route: 048
     Dates: start: 20080702, end: 20080814
  9. VOVERAN - SLOW RELEASE [Concomitant]
     Route: 048
     Dates: start: 20080702, end: 20080814
  10. DIAZEPAM [Concomitant]
     Route: 048
     Dates: start: 20080702, end: 20080814

REACTIONS (7)
  - ANAEMIA [None]
  - ASTHENIA [None]
  - BLOOD CREATININE INCREASED [None]
  - DIARRHOEA [None]
  - INTESTINAL OBSTRUCTION [None]
  - NEUTROPENIA [None]
  - VOMITING [None]
